FAERS Safety Report 7903424 (Version 4)
Quarter: 2017Q3

REPORT INFORMATION
  Report Type: Spontaneous
  Country: US (occurrence: US)
  Receive Date: 20110418
  Receipt Date: 20170905
  Transmission Date: 20171128
  Serious: Yes (Other)
  Sender: FDA-Public Use
  Company Number: US-ASTRAZENECA-2011SE20347

PATIENT
  Age: 62 Year
  Sex: Male

DRUGS (2)
  1. LYRICA [Concomitant]
     Active Substance: PREGABALIN
  2. CRESTOR [Suspect]
     Active Substance: ROSUVASTATIN CALCIUM
     Indication: CARDIOVASCULAR DISORDER
     Route: 048
     Dates: end: 2014

REACTIONS (10)
  - Foot fracture [Unknown]
  - Therapy cessation [Unknown]
  - Pain in extremity [Unknown]
  - Arthropathy [Unknown]
  - Back pain [Unknown]
  - Intervertebral disc protrusion [Unknown]
  - Upper limb fracture [Unknown]
  - Road traffic accident [Unknown]
  - Balance disorder [Unknown]
  - Nerve injury [Unknown]

NARRATIVE: CASE EVENT DATE: 2014
